FAERS Safety Report 25263101 (Version 1)
Quarter: 2025Q2

REPORT INFORMATION
  Report Type: Spontaneous
  Country: US (occurrence: None)
  Receive Date: 20250501
  Receipt Date: 20250501
  Transmission Date: 20250716
  Serious: Yes (Hospitalization)
  Sender: FDA-CTU
  Company Number: None

PATIENT
  Age: 63 Year
  Sex: Female

DRUGS (1)
  1. SERTRALINE HYDROCHLORIDE [Suspect]
     Active Substance: SERTRALINE HYDROCHLORIDE
     Indication: Depression
     Route: 048
     Dates: start: 20241015

REACTIONS (7)
  - Gastrooesophageal reflux disease [None]
  - Serotonin syndrome [None]
  - Intentional product use issue [None]
  - Depression [None]
  - Cough [None]
  - Suicidal ideation [None]
  - Syncope [None]

NARRATIVE: CASE EVENT DATE: 20241015
